FAERS Safety Report 7391590-8 (Version None)
Quarter: 2011Q2

REPORT INFORMATION
  Report Type: 
  Country: None (occurrence: None)
  Receive Date: 20110404
  Receipt Date: 20110325
  Transmission Date: 20111010
  Serious: Yes (Hospitalization)
  Sender: FDA-Public Use
  Company Number: PHHO2011US05509

PATIENT
  Sex: Female
  Weight: 66 kg

DRUGS (3)
  1. TEMOZOLOMIDE [Suspect]
     Indication: GLIOBLASTOMA
     Dosage: 75 MG/M2, QD
     Route: 048
     Dates: start: 20100616, end: 20101103
  2. RADIATION THERAPY [Concomitant]
  3. AFINITOR [Suspect]
     Indication: GLIOBLASTOMA
     Dosage: 70 MG, Q WEEK
     Route: 048
     Dates: start: 20100616, end: 20110403

REACTIONS (1)
  - PLATELET COUNT ABNORMAL [None]
